FAERS Safety Report 17774510 (Version 1)
Quarter: 2020Q2

REPORT INFORMATION
  Report Type: Report from Study
  Country: None (occurrence: US)
  Receive Date: 20200513
  Receipt Date: 20200513
  Transmission Date: 20200714
  Serious: Yes (Other)
  Sender: FDA-Public Use
  Company Number: US-BIOVITRUM-2020US0611

PATIENT
  Sex: Female

DRUGS (1)
  1. KINERET [Suspect]
     Active Substance: ANAKINRA
     Indication: STILL^S DISEASE
     Route: 058
     Dates: start: 20190418

REACTIONS (15)
  - C-reactive protein increased [Unknown]
  - Off label use [Not Recovered/Not Resolved]
  - Contusion [Unknown]
  - Bradyphrenia [Unknown]
  - Night sweats [Unknown]
  - Headache [Unknown]
  - Gait disturbance [Unknown]
  - Still^s disease [Unknown]
  - Red blood cell sedimentation rate increased [Unknown]
  - Injection site pain [Unknown]
  - Blood uric acid increased [Unknown]
  - Gastrointestinal disorder [Unknown]
  - Alopecia [Unknown]
  - Condition aggravated [Unknown]
  - Nausea [Unknown]
